FAERS Safety Report 7656597-1 (Version None)
Quarter: 2011Q3

REPORT INFORMATION
  Report Type: 
  Country: None (occurrence: None)
  Receive Date: 20110804
  Receipt Date: 20110525
  Transmission Date: 20111222
  Serious: No
  Sender: FDA-Public Use
  Company Number: US-BAUSCH-2011BL003636

PATIENT
  Sex: Female
  Weight: 55 kg

DRUGS (1)
  1. OPCON-A [Suspect]
     Indication: EYE ALLERGY
     Route: 047
     Dates: start: 20110518, end: 20110524

REACTIONS (1)
  - DRUG INEFFECTIVE [None]
